FAERS Safety Report 4531090-3 (Version None)
Quarter: 2004Q4

REPORT INFORMATION
  Report Type: 
  Country: None (occurrence: None)
  Receive Date: 20041201
  Receipt Date: 20041018
  Transmission Date: 20050328
  Serious: Yes (Other)
  Sender: FDA-Public Use
  Company Number: US090935

PATIENT
  Age: 53 Year
  Sex: Female

DRUGS (5)
  1. ENBREL [Suspect]
     Indication: RHEUMATOID ARTHRITIS
     Dosage: 25 MG, 2 IN 1 WEEKS, SC
     Route: 058
     Dates: start: 20030331, end: 20040506
  2. PREDNISONE [Concomitant]
  3. SIMVASTATIN [Concomitant]
  4. METHOTREXATE [Concomitant]
  5. ESOMEPRAZOLE MAGNESIUM [Concomitant]

REACTIONS (1)
  - BREAST CANCER STAGE I [None]
